FAERS Safety Report 8264601-5 (Version None)
Quarter: 2012Q2

REPORT INFORMATION
  Report Type: 
  Country: None (occurrence: None)
  Receive Date: 20120404
  Receipt Date: 20120329
  Transmission Date: 20120825
  Serious: Yes (Other)
  Sender: FDA-Public Use
  Company Number: 2010MA002619

PATIENT
  Sex: Female
  Weight: 43.0917 kg

DRUGS (14)
  1. MULTI-VITAMINS [Concomitant]
  2. DILANTIN [Concomitant]
  3. PROTONIX [Concomitant]
  4. FERROUS SULFATE TAB [Concomitant]
  5. HYDROXYZINE [Concomitant]
  6. PROMETHEGAN [Concomitant]
  7. OXYCODONE HCL AND ACETAMINOPHEN [Concomitant]
  8. POTASSIUM [Concomitant]
  9. RANITIDINE [Concomitant]
  10. SERTRALINE HYDROCHLORIDE [Concomitant]
  11. METOCLOPRAMIDE [Suspect]
     Indication: GASTROOESOPHAGEAL REFLUX DISEASE
     Dosage: 10 MG;QID;PO
     Route: 048
     Dates: start: 20040329, end: 20080601
  12. METOCLOPRAMIDE [Suspect]
     Indication: IMPAIRED GASTRIC EMPTYING
     Dosage: 10 MG;QID;PO
     Route: 048
     Dates: start: 20040329, end: 20080601
  13. METOCLOPRAMIDE [Suspect]
     Indication: NAUSEA
     Dosage: 10 MG;QID;PO
     Route: 048
     Dates: start: 20040329, end: 20080601
  14. ZOFRAN [Concomitant]

REACTIONS (18)
  - MOTOR DYSFUNCTION [None]
  - POOR QUALITY SLEEP [None]
  - UNEVALUABLE EVENT [None]
  - CACHEXIA [None]
  - EXTRAPYRAMIDAL DISORDER [None]
  - ECONOMIC PROBLEM [None]
  - MOVEMENT DISORDER [None]
  - CONVULSION [None]
  - DYSKINESIA [None]
  - INCORRECT DRUG ADMINISTRATION DURATION [None]
  - PERIODIC LIMB MOVEMENT DISORDER [None]
  - EMOTIONAL DISORDER [None]
  - RESTLESSNESS [None]
  - FEELING ABNORMAL [None]
  - TARDIVE DYSKINESIA [None]
  - HALLUCINATION [None]
  - AKATHISIA [None]
  - LIMB DISCOMFORT [None]
